FAERS Safety Report 5309582-9 (Version None)
Quarter: 2007Q2

REPORT INFORMATION
  Report Type: 
  Country: None (occurrence: None)
  Receive Date: 20070425
  Receipt Date: 20070425
  Transmission Date: 20071010
  Serious: Yes (Hospitalization)
  Sender: FDA-Public Use
  Company Number: None

PATIENT
  Age: 19 Year
  Sex: Male
  Weight: 99 kg

DRUGS (1)
  1. VARENICLINE (CHANTIX), 1 MG TABLETS, PFIZER, INC. [Suspect]
     Indication: SMOKING CESSATION THERAPY
     Dosage: 1 MG BID PO
     Route: 048

REACTIONS (2)
  - FIBRIN D DIMER INCREASED [None]
  - PULMONARY EMBOLISM [None]
